FAERS Safety Report 17841219 (Version 2)
Quarter: 2020Q2

REPORT INFORMATION
  Report Type: Spontaneous
  Country: US (occurrence: US)
  Receive Date: 20200529
  Receipt Date: 20200529
  Transmission Date: 20200714
  Serious: Yes (Other)
  Sender: FDA-Public Use
  Company Number: US-ENDO PHARMACEUTICALS INC-2020-003906

PATIENT
  Age: 4 Decade
  Sex: Female

DRUGS (2)
  1. HYDRALAZINE HYDROCHLORIDE. [Suspect]
     Active Substance: HYDRALAZINE HYDROCHLORIDE
     Indication: HYPERTENSION
     Dosage: 10 MG, DAILY
     Route: 065
  2. HYDRALAZINE HYDROCHLORIDE. [Suspect]
     Active Substance: HYDRALAZINE HYDROCHLORIDE
     Dosage: INCREASED TO 60 MG/DAY AFTER EIGHT MONTHS
     Route: 065

REACTIONS (3)
  - Exposure during pregnancy [Unknown]
  - Intentional product use issue [Unknown]
  - Lupus-like syndrome [Recovered/Resolved]
